FAERS Safety Report 25089040 (Version 1)
Quarter: 2025Q1

REPORT INFORMATION
  Report Type: Spontaneous
  Country: US (occurrence: None)
  Receive Date: 20250316
  Receipt Date: 20250316
  Transmission Date: 20250409
  Serious: Yes (Life-Threatening, Disabling)
  Sender: FDA-CTU
  Company Number: None

PATIENT
  Age: 43 Year
  Weight: 90.72 kg

DRUGS (3)
  1. BOTOX [Suspect]
     Active Substance: ONABOTULINUMTOXINA
     Indication: Torticollis
     Route: 030
     Dates: start: 20240703, end: 20240703
  2. TIROSTANT [Concomitant]
  3. PROMETRIUM [Concomitant]
     Active Substance: PROGESTERONE

REACTIONS (4)
  - Muscular weakness [None]
  - Dysphagia [None]
  - Dyspnoea [None]
  - Hypertension [None]

NARRATIVE: CASE EVENT DATE: 20241101
